FAERS Safety Report 14638615 (Version 1)
Quarter: 2018Q1

REPORT INFORMATION
  Report Type: Other
  Country: US (occurrence: US)
  Receive Date: 20180314
  Receipt Date: 20180314
  Transmission Date: 20180509
  Serious: Yes (Other)
  Sender: FDA-Public Use
  Company Number: US-CIPHER-2018-US-000104

PATIENT
  Age: 58 Year
  Sex: Female

DRUGS (1)
  1. FENOFIBRATE. [Suspect]
     Active Substance: FENOFIBRATE
     Indication: HYPERLIPIDAEMIA

REACTIONS (8)
  - Beta globulin [Unknown]
  - Photosensitivity reaction [Unknown]
  - Skin hyperpigmentation [Unknown]
  - Skin discolouration [Unknown]
  - Dry skin [Unknown]
  - Protein total increased [Unknown]
  - Dry eye [Unknown]
  - Lichenoid keratosis [Unknown]
